FAERS Safety Report 9855408 (Version 1)
Quarter: 2014Q1

REPORT INFORMATION
  Report Type: Spontaneous
  Country: US (occurrence: None)
  Receive Date: 20140129
  Receipt Date: 20140129
  Transmission Date: 20141002
  Serious: No
  Sender: FDA-Public Use
  Company Number: None

PATIENT
  Age: 92 Year
  Sex: Female
  Weight: 59.88 kg

DRUGS (1)
  1. TRAMADOL 50MG [Suspect]
     Route: 048

REACTIONS (1)
  - International normalised ratio increased [None]
